FAERS Safety Report 6341651-7 (Version None)
Quarter: 2009Q3

REPORT INFORMATION
  Report Type: 
  Country: None (occurrence: None)
  Receive Date: 20090904
  Receipt Date: 20090825
  Transmission Date: 20100115
  Serious: Yes (Hospitalization)
  Sender: FDA-Public Use
  Company Number: AR-AMGEN-US361125

PATIENT
  Sex: Female
  Weight: 77 kg

DRUGS (4)
  1. ENBREL [Suspect]
     Indication: RHEUMATOID ARTHRITIS
     Route: 058
     Dates: start: 20071022
  2. DICLOFENAC [Concomitant]
     Indication: PAIN
     Dosage: 1 TABLET
     Route: 048
  3. VITAMIN B-12 [Concomitant]
     Dosage: 1 TABLET
     Route: 048
  4. METHOTREXATE [Concomitant]
     Indication: RHEUMATOID ARTHRITIS
     Route: 065

REACTIONS (4)
  - CONDITION AGGRAVATED [None]
  - HEPATIC CIRRHOSIS [None]
  - ULCER [None]
  - ULCER HAEMORRHAGE [None]
